FAERS Safety Report 24396899 (Version 1)
Quarter: 2024Q4

REPORT INFORMATION
  Report Type: Spontaneous
  Country: US (occurrence: None)
  Receive Date: 20241004
  Receipt Date: 20241004
  Transmission Date: 20250114
  Serious: Yes (Death)
  Sender: Public
  Company Number: None

PATIENT
  Sex: Female
  Weight: 39.7 kg

DRUGS (2)
  1. LOMUSTINE [Suspect]
     Active Substance: LOMUSTINE
     Dates: start: 20240419, end: 20240729
  2. TEMOZOLOMIDE [Suspect]
     Active Substance: TEMOZOLOMIDE

REACTIONS (20)
  - Mental status changes [None]
  - Dehydration [None]
  - Hypotension [None]
  - Sepsis [None]
  - Acute kidney injury [None]
  - Uraemic encephalopathy [None]
  - Hypernatraemia [None]
  - Acute respiratory failure [None]
  - Shock [None]
  - Lactic acidosis [None]
  - Malnutrition [None]
  - Anaemia [None]
  - Platelet count decreased [None]
  - Lymphocyte count decreased [None]
  - Hyperglycaemia [None]
  - Hypercalcaemia [None]
  - Hypermagnesaemia [None]
  - Atrial fibrillation [None]
  - Haemorrhage intracranial [None]
  - Cerebral infarction [None]

NARRATIVE: CASE EVENT DATE: 20240824
